FAERS Safety Report 6312536-7 (Version None)
Quarter: 2009Q3

REPORT INFORMATION
  Report Type: 
  Country: None (occurrence: None)
  Receive Date: 20090813
  Receipt Date: 20090724
  Transmission Date: 20100115
  Serious: Yes (Hospitalization)
  Sender: FDA-Public Use
  Company Number: 2008-180467-NL

PATIENT
  Age: 44 Year
  Sex: Female
  Weight: 72.6 kg

DRUGS (1)
  1. NUVARING [Suspect]
     Indication: MENSTRUATION IRREGULAR
     Dates: start: 20040426, end: 20040712

REACTIONS (22)
  - ANAEMIA [None]
  - ANEURYSM [None]
  - BLOOD FOLLICLE STIMULATING HORMONE INCREASED [None]
  - BLOOD HUMAN CHORIONIC GONADOTROPIN INCREASED [None]
  - BLOOD LUTEINISING HORMONE INCREASED [None]
  - COGNITIVE DISORDER [None]
  - CONSTIPATION [None]
  - DYSFUNCTIONAL UTERINE BLEEDING [None]
  - GASTROOESOPHAGEAL REFLUX DISEASE [None]
  - HYPOTHYROIDISM [None]
  - INTRAOCULAR PRESSURE INCREASED [None]
  - MAMMOGRAM ABNORMAL [None]
  - MITRAL VALVE INCOMPETENCE [None]
  - NECK MASS [None]
  - OFF LABEL USE [None]
  - PARAESTHESIA [None]
  - PNEUMONIA [None]
  - SUBDURAL HAEMATOMA [None]
  - SUPERIOR SAGITTAL SINUS THROMBOSIS [None]
  - URINARY TRACT INFECTION [None]
  - UTERINE HAEMORRHAGE [None]
  - UTERINE LEIOMYOMA [None]
